FAERS Safety Report 25240339 (Version 1)
Quarter: 2025Q2

REPORT INFORMATION
  Report Type: Spontaneous
  Country: JP (occurrence: JP)
  Receive Date: 20250425
  Receipt Date: 20250425
  Transmission Date: 20250716
  Serious: Yes (Death, Hospitalization, Other)
  Sender: GILEAD
  Company Number: JP-GILEAD-2025-0711267

PATIENT
  Age: 64 Year
  Sex: Male

DRUGS (1)
  1. YESCARTA [Suspect]
     Active Substance: AXICABTAGENE CILOLEUCEL
     Indication: B-cell lymphoma
     Route: 065

REACTIONS (2)
  - Death [Fatal]
  - Cytokine release syndrome [Unknown]
